FAERS Safety Report 9142520 (Version 1)
Quarter: 2013Q1

REPORT INFORMATION
  Report Type: Spontaneous
  Country: US (occurrence: US)
  Receive Date: 20130306
  Receipt Date: 20130306
  Transmission Date: 20140127
  Serious: No
  Sender: FDA-Public Use
  Company Number: US-BIOGENIDEC-2013BI020764

PATIENT
  Age: 63 Year
  Sex: Female

DRUGS (2)
  1. TYSABRI [Suspect]
     Indication: MULTIPLE SCLEROSIS
     Route: 042
     Dates: start: 20070125
  2. NOVANTRONE [Concomitant]
     Indication: MULTIPLE SCLEROSIS

REACTIONS (3)
  - Arrhythmia [Unknown]
  - Cataract [Recovered/Resolved]
  - Alopecia [Not Recovered/Not Resolved]
